FAERS Safety Report 26051227 (Version 1)
Quarter: 2025Q4

REPORT INFORMATION
  Report Type: Report from Study
  Country: EU (occurrence: EU)
  Receive Date: 20251117
  Receipt Date: 20251117
  Transmission Date: 20260118
  Serious: Yes (Other)
  Sender: JOHNSON AND JOHNSON
  Company Number: None

PATIENT
  Age: 26 Year
  Sex: Male
  Weight: 76 kg

DRUGS (2)
  1. RILPIVIRINE [Suspect]
     Active Substance: RILPIVIRINE
     Indication: HIV infection
     Dosage: SCHEDULE: WEEK 0, WEEK 4, AND THEN EVERY 8 WEEKS.
     Route: 030
     Dates: start: 20250818, end: 20250818
  2. VOCABRIA [Suspect]
     Active Substance: CABOTEGRAVIR SODIUM
     Indication: HIV infection
     Dosage: SCHEDULE: WEEK 0, WEEK 4, AND THEN EVERY 8 WEEKS.
     Route: 030
     Dates: start: 20250818, end: 20250818

REACTIONS (6)
  - Pain [Recovered/Resolved]
  - Administration site pain [Recovered/Resolved]
  - Administration site discomfort [Recovered/Resolved]
  - Headache [Recovered/Resolved]
  - Pyrexia [Recovered/Resolved]
  - Myalgia [Recovered/Resolved]
